FAERS Safety Report 4311977-7 (Version None)
Quarter: 2004Q1

REPORT INFORMATION
  Report Type: 
  Country: None (occurrence: None)
  Receive Date: 20040305
  Receipt Date: 20030718
  Transmission Date: 20041129
  Serious: No
  Sender: FDA-Public Use
  Company Number: US-GLAXOSMITHKLINE-A0418075A

PATIENT
  Age: 68 Year
  Sex: Male

DRUGS (5)
  1. REQUIP [Suspect]
     Indication: PARKINSON'S DISEASE
     Dosage: 7MG TWICE PER DAY
     Route: 048
  2. SINEMET [Concomitant]
  3. KLONOPIN [Concomitant]
  4. COMTAN [Concomitant]
  5. SEROQUEL [Concomitant]

REACTIONS (3)
  - DIFFICULTY IN WALKING [None]
  - MEDICATION ERROR [None]
  - MOVEMENT DISORDER [None]
